FAERS Safety Report 4479151-1 (Version None)
Quarter: 2004Q3

REPORT INFORMATION
  Report Type: 
  Country: None (occurrence: None)
  Receive Date: 20040923
  Receipt Date: 20040630
  Transmission Date: 20050211
  Serious: Yes (Life-Threatening, Hospitalization)
  Sender: FDA-Public Use
  Company Number: 207522

PATIENT
  Age: 73 Year
  Sex: Female

DRUGS (11)
  1. AVASTIN [Suspect]
     Indication: COLORECTAL CANCER METASTATIC
     Dosage: 260 MG, Q2W, INTRAVENOUS
     Route: 042
     Dates: start: 20040402
  2. OXALIPLATIN [Concomitant]
  3. FLUOROURACIL [Concomitant]
  4. LEUCOVORIN CALCIUM [Concomitant]
  5. LOVENOX [Concomitant]
  6. LIPITOR [Concomitant]
  7. FOSAMAX [Concomitant]
  8. B12 (CYANOCOBALAMIN) [Concomitant]
  9. XALATAN [Concomitant]
  10. TIMOPTIC EYE DROPS (TIMOLOL MALEATE) [Concomitant]
  11. B6 (PYRIDOXINE HYDROCHLORIDE) [Concomitant]

REACTIONS (1)
  - GASTROINTESTINAL PERFORATION [None]
